FAERS Safety Report 20307675 (Version 1)
Quarter: 2022Q1

REPORT INFORMATION
  Report Type: Spontaneous
  Country: NL (occurrence: NL)
  Receive Date: 20220107
  Receipt Date: 20220107
  Transmission Date: 20220423
  Serious: Yes (Other)
  Sender: FDA-Public Use
  Company Number: None

PATIENT
  Age: 21 Year
  Sex: Female
  Weight: 71 kg

DRUGS (2)
  1. QUETIAPINE [Suspect]
     Active Substance: QUETIAPINE
     Indication: Sleep disorder
     Dosage: 12 MILLIGRAM DAILY; QUETIAPINE TABLET FO 25MG / BRAND NAME NOT SPECIFIED; THERAPY END DATE: ASKU
     Dates: start: 202109
  2. QUETIAPINE [Suspect]
     Active Substance: QUETIAPINE
     Dosage: 25 MILLIGRAM DAILY; THERAPY START DATE : ASKU; QUETIAPINE TABLET FO 25MG / BRAND NAME NOT SPECIFIED;
     Dates: end: 20211210

REACTIONS (4)
  - Suicidal ideation [Not Recovered/Not Resolved]
  - Hallucination [Not Recovered/Not Resolved]
  - Frustration tolerance decreased [Not Recovered/Not Resolved]
  - Affect lability [Not Recovered/Not Resolved]

NARRATIVE: CASE EVENT DATE: 20211122
